FAERS Safety Report 6190192-9 (Version None)
Quarter: 2009Q2

REPORT INFORMATION
  Report Type: 
  Country: None (occurrence: None)
  Receive Date: 20090514
  Receipt Date: 20090507
  Transmission Date: 20091009
  Serious: Yes (Other)
  Sender: FDA-Public Use
  Company Number: JP-BAYER-200911417BYL

PATIENT
  Age: 60 Year
  Sex: Female
  Weight: 67 kg

DRUGS (8)
  1. FLUDARA [Suspect]
     Indication: MANTLE CELL LYMPHOMA STAGE IV
     Dosage: AS USED: 30 MG/M2  UNIT DOSE: 50 MG
     Route: 042
     Dates: start: 20081017, end: 20081022
  2. ALKERAN [Concomitant]
     Indication: MANTLE CELL LYMPHOMA STAGE IV
     Dosage: AS USED: 70 MG/M2
     Route: 042
     Dates: start: 20081017, end: 20081017
  3. ALKERAN [Concomitant]
     Dosage: AS USED: 70 MG/M2
     Route: 042
     Dates: start: 20081021, end: 20081021
  4. METHOTREXATE [Concomitant]
     Dosage: AS USED: 15 MG
     Route: 042
     Dates: start: 20081025, end: 20081025
  5. METHOTREXATE [Concomitant]
     Dosage: AS USED: 10 MG
     Route: 042
     Dates: start: 20081027, end: 20081027
  6. METHOTREXATE [Concomitant]
     Dosage: AS USED: 10 MG
     Route: 042
     Dates: start: 20081030, end: 20081030
  7. CONCENTRATED RED CELLS [Concomitant]
     Indication: PACKED RED BLOOD CELL TRANSFUSION
     Route: 042
     Dates: start: 20081104, end: 20081108
  8. PLATELETS [Concomitant]
     Indication: PLATELET TRANSFUSION
     Route: 042
     Dates: start: 20081026, end: 20081107

REACTIONS (2)
  - ACUTE GRAFT VERSUS HOST DISEASE [None]
  - CYSTITIS HAEMORRHAGIC [None]
